FAERS Safety Report 17584443 (Version 3)
Quarter: 2021Q1

REPORT INFORMATION
  Report Type: Spontaneous
  Country: US (occurrence: US)
  Receive Date: 20200326
  Receipt Date: 20210105
  Transmission Date: 20210419
  Serious: No
  Sender: FDA-Public Use
  Company Number: US-PFIZER INC-2020125043

PATIENT
  Age: 54 Year
  Sex: Female

DRUGS (3)
  1. LYRICA [Suspect]
     Active Substance: PREGABALIN
     Indication: ARTHRALGIA
  2. LYRICA [Suspect]
     Active Substance: PREGABALIN
     Indication: MYALGIA
  3. LYRICA [Suspect]
     Active Substance: PREGABALIN
     Indication: FIBROMYALGIA
     Dosage: 200 MG, 3X/DAY (TAKE 1 CAPSULE (200 MG TOTAL) BY MOUTH 3 (THREE) TIMES DAILY)
     Route: 048

REACTIONS (1)
  - Cerebral disorder [Unknown]
